FAERS Safety Report 9171620 (Version 2)
Quarter: 2013Q1

REPORT INFORMATION
  Report Type: Spontaneous
  Country: US (occurrence: None)
  Receive Date: 20130124
  Receipt Date: 20130212
  Transmission Date: 20140127
  Serious: Yes (Hospitalization)
  Sender: FDA-Public Use
  Company Number: 2013PROUSA02461

PATIENT
  Age: 65 Year
  Sex: Male
  Weight: 114.3 kg

DRUGS (21)
  1. PROVENGE (SIPULEUCEL-T) SUSPENSION [Suspect]
     Indication: PROSTATE CANCER METASTATIC
     Route: 042
     Dates: start: 20121206, end: 20121206
  2. MEGESTROL (MEGESTROL ACETATE) [Concomitant]
  3. VICODIN (HYDROCODONE BITARTRATE, PARACETAMOL) [Concomitant]
  4. CALCIUM (CALCIUM) [Concomitant]
  5. DILTIAZEM (DILTIAZEM HYDROCHLORIDE) [Concomitant]
  6. ASCORBIC ACID (ASCORBIC ACID) [Concomitant]
  7. HYDRODIURIL (HYDROCHLOROTHIAZIDE) [Concomitant]
  8. POTASSIUM CHLORIDE (POTASSIUM CHLORIDE) [Concomitant]
  9. NEXIUM (ESOMEPRAZOLE SODIUM) [Concomitant]
  10. UROXATRAL (ALFUZOSIN HYDROCHLORIDE) [Concomitant]
  11. VITAMIN D2 (ERGOCALCIFEROL) [Concomitant]
  12. JAYLN (DUTASTERIDE, TAMSULOSIN HYDROCHLORIDE) [Concomitant]
  13. CASODEX (BICALUTAMIDE) [Concomitant]
  14. DETROL LA (TOLTERODINE L-TARTRATE) [Concomitant]
  15. LEVITRA (VARDENAFIL HYDROCHLORIDE) (VARDENAFIL HYDROCHLORIDE) [Concomitant]
  16. DITROPAN XL (OXYBUTYNIN HYDROCHLORIDE) [Concomitant]
  17. VITAMIN B12 (CYANOCOBALAMIN) [Concomitant]
  18. MULTIVITAMINS (ASCORBIC ACID, ERGOCALCIFEROL, FOLIC ACID, NICOTINAMIDE, PANTHENOL, RETINOL, RIBOFLAVIN, THIAMINE HYDROCHLORIDE) [Concomitant]
  19. VESICARE (SOLIFENACIN SUCCINATE) [Concomitant]
  20. FLOMAX (TAMSULOSIN HYDROCHLORIDE) [Concomitant]
  21. HYDROCHLOROTHIAZIDE (HYDROCHLOROTHIAZIDE) [Concomitant]

REACTIONS (2)
  - Pulmonary embolism [None]
  - Deep vein thrombosis [None]
